FAERS Safety Report 8329749 (Version 2)
Quarter: 2013Q1

REPORT INFORMATION
  Report Type: Spontaneous
  Country: JP (occurrence: JP)
  Receive Date: 20120110
  Receipt Date: 20130118
  Transmission Date: 20140127
  Serious: Yes (Other)
  Sender: FDA-Public Use
  Company Number: JP-PFIZER INC-2011309399

PATIENT
  Age: 84 Year
  Sex: Male

DRUGS (3)
  1. NORVASC [Suspect]
     Dosage: 5 MG, UNK
     Route: 048
  2. NORVASC [Suspect]
     Dosage: 2.5 MG, UNK
     Route: 048
  3. CASODEX [Concomitant]
     Indication: PROSTATE CANCER
     Dosage: UNK
     Route: 048

REACTIONS (10)
  - Ventricular fibrillation [Unknown]
  - Purpura [Unknown]
  - Hypoaesthesia [Unknown]
  - Oedema peripheral [Unknown]
  - Muscle spasms [Unknown]
  - Diarrhoea [Unknown]
  - Platelet count decreased [Unknown]
  - Bradycardia [Unknown]
  - Orthostatic hypotension [Unknown]
  - White blood cell count decreased [Unknown]
